FAERS Safety Report 21901927 (Version 2)
Quarter: 2023Q1

REPORT INFORMATION
  Report Type: Spontaneous
  Country: JP (occurrence: JP)
  Receive Date: 20230124
  Receipt Date: 20230203
  Transmission Date: 20230417
  Serious: Yes (Other)
  Sender: FDA-Public Use
  Company Number: JP-CHUGAI-2023001444

PATIENT
  Age: 75 Year
  Sex: Male
  Weight: 76.5 kg

DRUGS (3)
  1. VABYSMO [Suspect]
     Active Substance: FARICIMAB-SVOA
     Indication: Neovascular age-related macular degeneration
     Route: 031
     Dates: start: 20220905, end: 20220905
  2. VABYSMO [Suspect]
     Active Substance: FARICIMAB-SVOA
     Route: 031
     Dates: start: 20221004, end: 20221004
  3. VABYSMO [Suspect]
     Active Substance: FARICIMAB-SVOA
     Dosage: MOST RECENT DOSE ADMINISTERED ON 01/NOV/2022
     Route: 031
     Dates: start: 20221101

REACTIONS (1)
  - Retinal pigment epithelial tear [Recovering/Resolving]

NARRATIVE: CASE EVENT DATE: 20221129
